FAERS Safety Report 23738737 (Version 1)
Quarter: 2024Q2

REPORT INFORMATION
  Report Type: Report from Study
  Country: US (occurrence: US)
  Receive Date: 20240413
  Receipt Date: 20240413
  Transmission Date: 20240716
  Serious: Yes (Hospitalization, Other)
  Sender: FDA-Public Use
  Company Number: US-ABBVIE-4698180

PATIENT
  Sex: Male

DRUGS (2)
  1. VENCLEXTA [Suspect]
     Active Substance: VENETOCLAX
     Indication: Primary amyloidosis
     Dosage: FORM STRENGTH: 100 MILLIGRAM?TWO TABLET EVERY DAY WITH A MEAL AND WATER AT THE SAME TIME EACH DAY
     Route: 048
  2. VENCLEXTA [Suspect]
     Active Substance: VENETOCLAX
     Indication: Primary amyloidosis
     Dosage: FORM STRENGTH: 100MILLIGRAM?ONE TABLET EVERY DAY WITH A MEAL AND WATER AT THE SAME TIME EACH DAY
     Route: 048

REACTIONS (3)
  - Surgery [Recovering/Resolving]
  - Off label use [Unknown]
  - Hospitalisation [Unknown]
